FAERS Safety Report 6172655-5 (Version None)
Quarter: 2009Q2

REPORT INFORMATION
  Report Type: 
  Country: None (occurrence: None)
  Receive Date: 20090430
  Receipt Date: 20090424
  Transmission Date: 20091009
  Serious: No
  Sender: FDA-Public Use
  Company Number: JP-ELI_LILLY_AND_COMPANY-JP200903006775

PATIENT
  Sex: Male
  Weight: 62.7 kg

DRUGS (14)
  1. PEMETREXED [Suspect]
     Indication: PLEURAL MESOTHELIOMA MALIGNANT
     Dosage: 500 MG, UNK
     Route: 042
     Dates: start: 20080305, end: 20080305
  2. PEMETREXED [Suspect]
     Dosage: 500 MG/M2, OTHER
     Route: 042
     Dates: start: 20080326, end: 20080618
  3. CISPLATIN [Suspect]
     Indication: PLEURAL MESOTHELIOMA MALIGNANT
     Dosage: 75 MG, UNK
     Route: 042
     Dates: start: 20080305, end: 20080305
  4. CISPLATIN [Suspect]
     Dosage: 75 MG/M2, OTHER
     Route: 042
     Dates: start: 20080326, end: 20080618
  5. DECADRON /00016002/ [Concomitant]
     Indication: PROPHYLAXIS
     Dosage: 16 MG, OTHER
     Route: 042
     Dates: start: 20080305, end: 20080620
  6. PANVITAN [Concomitant]
     Dosage: 1 G, DAILY (1/D)
     Route: 048
     Dates: start: 20080226, end: 20080710
  7. CYANOCOBALAMIN [Concomitant]
     Dosage: 1 MG, UNK
     Route: 030
     Dates: start: 20080226, end: 20080226
  8. CYANOCOBALAMIN [Concomitant]
     Dosage: 1 MG, UNK
     Route: 030
     Dates: start: 20080428, end: 20080428
  9. CYANOCOBALAMIN [Concomitant]
     Dosage: 1 MG, UNK
     Route: 030
     Dates: start: 20080702, end: 20080702
  10. AMARYL [Concomitant]
     Indication: DIABETES MELLITUS
     Dosage: 3 MG, DAILY (1/D)
     Route: 048
     Dates: start: 20070315
  11. LENDORMIN [Concomitant]
     Indication: INSOMNIA
     Dosage: 0.25 MG, UNK
     Route: 048
     Dates: start: 20070315
  12. KYTRIL [Concomitant]
     Indication: PROPHYLAXIS
     Dosage: 6 MG, UNK
     Route: 042
     Dates: start: 20080305, end: 20080620
  13. MEYLON [Concomitant]
     Indication: PROPHYLAXIS
     Dosage: 20 ML, UNK
     Route: 042
     Dates: start: 20080325, end: 20080620
  14. GASTER [Concomitant]
     Indication: PROPHYLAXIS
     Dosage: 40 MG, UNK
     Route: 042
     Dates: start: 20080305, end: 20080620

REACTIONS (1)
  - NO ADVERSE EVENT [None]
